FAERS Safety Report 22187265 (Version 8)
Quarter: 2025Q4

REPORT INFORMATION
  Report Type: Report from Study
  Country: US (occurrence: US)
  Receive Date: 20230407
  Receipt Date: 20251216
  Transmission Date: 20260118
  Serious: Yes (Disabling)
  Sender: PFIZER
  Company Number: US-PFIZER INC-PV202300062790

PATIENT
  Age: 74 Year
  Sex: Male
  Weight: 88.435 kg

DRUGS (2)
  1. TIKOSYN [Suspect]
     Active Substance: DOFETILIDE
     Indication: Atrial fibrillation
     Dosage: 0.5 MG, 3X/DAY
     Dates: start: 201803
  2. TIKOSYN [Suspect]
     Active Substance: DOFETILIDE
     Dosage: TAKE ONE CAPSULE BY ORAL ROUTE TWO TIMES EVERY DAY
     Route: 048
     Dates: start: 20180522

REACTIONS (3)
  - Cognitive disorder [Unknown]
  - Depression [Unknown]
  - Off label use [Unknown]
